FAERS Safety Report 11249156 (Version 2)
Quarter: 2015Q3

REPORT INFORMATION
  Report Type: Spontaneous
  Country: US (occurrence: US)
  Receive Date: 20150708
  Receipt Date: 20150708
  Transmission Date: 20151125
  Serious: Yes (Other)
  Sender: FDA-Public Use
  Company Number: US-ELI_LILLY_AND_COMPANY-US200902005030

PATIENT
  Age: 66 Year
  Sex: Male
  Weight: 112.47 kg

DRUGS (4)
  1. GEMZAR [Suspect]
     Active Substance: GEMCITABINE HYDROCHLORIDE
     Indication: SQUAMOUS CELL CARCINOMA OF LUNG
     Dosage: 2000 MG, DAYS 1 AND 15
     Route: 042
     Dates: start: 20080429, end: 20080819
  2. VITAMIN B12 [Concomitant]
     Active Substance: CYANOCOBALAMIN
     Dosage: 1000 UG, UNK
     Route: 058
     Dates: start: 20080902, end: 20090106
  3. ALIMTA [Suspect]
     Active Substance: PEMETREXED DISODIUM
     Indication: SQUAMOUS CELL CARCINOMA OF LUNG
     Dosage: 1000 MG, UNK
     Route: 042
     Dates: start: 20080909, end: 20081111
  4. FOLIC ACID. [Concomitant]
     Active Substance: FOLIC ACID
     Dosage: 1 MG, DAILY (1/D)
     Route: 048
     Dates: start: 20080902, end: 20081113

REACTIONS (2)
  - Malignant neoplasm progression [Not Recovered/Not Resolved]
  - Thrombocytopenia [Recovered/Resolved]

NARRATIVE: CASE EVENT DATE: 200808
